FAERS Safety Report 11490969 (Version 2)
Quarter: 2015Q3

REPORT INFORMATION
  Report Type: Spontaneous
  Country: JP (occurrence: JP)
  Receive Date: 20150910
  Receipt Date: 20150911
  Transmission Date: 20151125
  Serious: Yes (Other)
  Sender: FDA-Public Use
  Company Number: JP-009507513-1509JPN004816

PATIENT
  Age: 68 Year
  Sex: Male

DRUGS (3)
  1. ALKERAN [Suspect]
     Active Substance: MELPHALAN
     Indication: PLASMA CELL MYELOMA
     Dosage: DAILY DOSE UNKNOWN, FOUR CONSECUTIVE DAYS
     Route: 065
     Dates: start: 20150815, end: 20150818
  2. VELCADE [Concomitant]
     Active Substance: BORTEZOMIB
     Indication: PLASMA CELL MYELOMA
     Dosage: DAILY DOSE UNKNOWN, FOUR CONSECUTIVE DAYS
     Route: 065
     Dates: start: 20150815, end: 20150818
  3. DECADRON (DEXAMETHASONE SODIUM PHOSPHATE) [Suspect]
     Active Substance: DEXAMETHASONE SODIUM PHOSPHATE
     Indication: PLASMA CELL MYELOMA
     Dosage: DAILY DOSE: 39.6 MG, FOUR CONSECUTIVE DAYS
     Route: 065
     Dates: start: 20150815, end: 20150818

REACTIONS (1)
  - Gastrointestinal perforation [Recovered/Resolved]
